FAERS Safety Report 10663849 (Version 4)
Quarter: 2015Q2

REPORT INFORMATION
  Report Type: Spontaneous
  Country: US (occurrence: US)
  Receive Date: 20141219
  Receipt Date: 20150529
  Transmission Date: 20150821
  Serious: Yes (Hospitalization)
  Sender: FDA-Public Use
  Company Number: US-JNJFOC-20141206693

PATIENT
  Age: 57 Year
  Sex: Male
  Weight: 105.24 kg

DRUGS (6)
  1. METFORMIN [Concomitant]
     Active Substance: METFORMIN HYDROCHLORIDE
     Indication: DIABETES MELLITUS
     Dosage: PILL, A YEAR AND HALF
     Route: 048
     Dates: start: 201306
  2. ATORVASTATIN [Concomitant]
     Active Substance: ATORVASTATIN
     Indication: BLOOD CHOLESTEROL INCREASED
     Dosage: 3 MONTHS
     Route: 048
     Dates: start: 201306
  3. METFORMIN [Concomitant]
     Active Substance: METFORMIN HYDROCHLORIDE
     Indication: DIABETES MELLITUS
     Route: 048
  4. AZOR [Concomitant]
     Active Substance: AMLODIPINE BESYLATE\OLMESARTAN MEDOXOMIL
     Indication: HYPERTENSION
     Dosage: 10-40 MG; 3 MONTHS
     Route: 065
     Dates: start: 201409
  5. NEOSPORIN [Suspect]
     Active Substance: BACITRACIN ZINC\NEOMYCIN SULFATE\POLYMYXIN B SULFATE
     Indication: SCRATCH
     Dosage: DOSE: QUARTER SIZE AMOUNT
     Route: 061
     Dates: start: 20141113, end: 20141129
  6. AMLODIPINE W/ OLMESARTAN [Concomitant]
     Active Substance: AMLODIPINE MALEATE\OLMESARTAN MEDOXOMIL
     Indication: PRODUCT USED FOR UNKNOWN INDICATION
     Dosage: 10-40 MG; EVERYDAY
     Route: 048

REACTIONS (8)
  - Skin exfoliation [Recovering/Resolving]
  - Skin discolouration [Recovering/Resolving]
  - Drug hypersensitivity [Recovering/Resolving]
  - Dermatitis contact [Recovering/Resolving]
  - Wound secretion [Recovering/Resolving]
  - Furuncle [Recovering/Resolving]
  - Application site pain [Recovering/Resolving]
  - Cellulitis [Unknown]

NARRATIVE: CASE EVENT DATE: 20141117
